FAERS Safety Report 7693991-7 (Version None)
Quarter: 2011Q3

REPORT INFORMATION
  Report Type: 
  Country: None (occurrence: None)
  Receive Date: 20110819
  Receipt Date: 20110808
  Transmission Date: 20111222
  Serious: Yes (Disabling)
  Sender: FDA-Public Use
  Company Number: GB-SANOFI-AVENTIS-2011SA050867

PATIENT
  Age: 78 Year
  Sex: Male

DRUGS (9)
  1. QUININE SULFATE [Concomitant]
     Route: 065
  2. FUROSEMIDE [Concomitant]
     Route: 065
  3. ZOPICLONE [Concomitant]
     Route: 065
  4. ACETAMINOPHEN [Concomitant]
     Route: 065
  5. PRILOSEC [Concomitant]
     Route: 065
  6. MICARDIS [Concomitant]
     Route: 065
  7. ASPIRIN [Concomitant]
     Route: 065
  8. SIMVASTATIN [Concomitant]
     Route: 065
  9. MULTAQ [Suspect]
     Indication: ARRHYTHMIA
     Route: 048
     Dates: start: 20110221, end: 20110725

REACTIONS (2)
  - DIZZINESS [None]
  - HEADACHE [None]
